FAERS Safety Report 4625263-9 (Version None)
Quarter: 2005Q2

REPORT INFORMATION
  Report Type: 
  Country: None (occurrence: None)
  Receive Date: 20050401
  Receipt Date: 20050322
  Transmission Date: 20051028
  Serious: Yes (Hospitalization)
  Sender: FDA-Public Use
  Company Number: JP-ROCHE-399856

PATIENT
  Age: 63 Year
  Sex: Female

DRUGS (2)
  1. TAMIFLU [Suspect]
     Indication: INFLUENZA
     Route: 048
     Dates: start: 20050309, end: 20050311
  2. ANTIEPILEPTIC [Concomitant]

REACTIONS (3)
  - ASTHMA [None]
  - CONVULSION [None]
  - DRUG LEVEL INCREASED [None]
